FAERS Safety Report 9891762 (Version 1)
Quarter: 2014Q1

REPORT INFORMATION
  Report Type: Spontaneous
  Country: NO (occurrence: NO)
  Receive Date: 20140212
  Receipt Date: 20140212
  Transmission Date: 20141002
  Serious: Yes (Hospitalization)
  Sender: FDA-Public Use
  Company Number: NO-BAXTER-2014BAX006411

PATIENT
  Age: 72 Year
  Sex: Male

DRUGS (2)
  1. EXTRANEAL PERITONEALDIALYSEV?SKE 75 MG/ML [Suspect]
     Indication: PERITONEAL DIALYSIS
     Route: 033
     Dates: start: 20140108, end: 20140117
  2. ISOTONIC SOLUTIONS [Concomitant]
     Indication: PRODUCT USED FOR UNKNOWN INDICATION

REACTIONS (3)
  - Corneal oedema [Recovering/Resolving]
  - Keratitis [Recovering/Resolving]
  - Rash maculo-papular [Recovering/Resolving]
